FAERS Safety Report 25856437 (Version 1)
Quarter: 2025Q3

REPORT INFORMATION
  Report Type: Spontaneous
  Country: EU (occurrence: EU)
  Receive Date: 20250929
  Receipt Date: 20250929
  Transmission Date: 20251020
  Serious: Yes (Life-Threatening, Hospitalization, Other)
  Sender: BRISTOL-MYERS SQUIBB COMPANY
  Company Number: EU-BRISTOL-MYERS SQUIBB COMPANY-2025-129989

PATIENT
  Age: 71 Year
  Sex: Male

DRUGS (1)
  1. OPDUALAG [Suspect]
     Active Substance: NIVOLUMAB\RELATLIMAB-RMBW
     Indication: Metastatic malignant melanoma

REACTIONS (8)
  - Diabetic ketoacidotic hyperglycaemic coma [Unknown]
  - Colitis [Unknown]
  - Hepatitis [Unknown]
  - Thyroiditis [Unknown]
  - Arthritis [Unknown]
  - Vitiligo [Unknown]
  - Dry mouth [Unknown]
  - Type 1 diabetes mellitus [Unknown]
